FAERS Safety Report 6411847-4 (Version None)
Quarter: 2009Q4

REPORT INFORMATION
  Report Type: 
  Country: None (occurrence: None)
  Receive Date: 20091023
  Receipt Date: 20091013
  Transmission Date: 20100525
  Serious: Yes (Other)
  Sender: FDA-Public Use
  Company Number: CA-JNJFOC-20091004959

PATIENT
  Sex: Female
  Weight: 90.2 kg

DRUGS (2)
  1. REMICADE [Suspect]
     Dosage: SECOND DOSE
     Route: 042
  2. REMICADE [Suspect]
     Indication: BEHCET'S SYNDROME
     Dosage: LOADING DOSE
     Route: 042

REACTIONS (6)
  - ABDOMINAL DISTENSION [None]
  - DYSPNOEA [None]
  - OEDEMA PERIPHERAL [None]
  - RECTAL HAEMORRHAGE [None]
  - SWELLING FACE [None]
  - WEIGHT INCREASED [None]
